FAERS Safety Report 12068972 (Version 1)
Quarter: 2016Q1

REPORT INFORMATION
  Report Type: Spontaneous
  Country: US (occurrence: US)
  Receive Date: 20160211
  Receipt Date: 20160211
  Transmission Date: 20160526
  Serious: Yes (Other)
  Sender: FDA-Public Use
  Company Number: US-AMGEN-USASP2016014742

PATIENT
  Age: 18 Year
  Sex: Male

DRUGS (2)
  1. VINCRISTINE [Suspect]
     Active Substance: VINCRISTINE
     Indication: B PRECURSOR TYPE ACUTE LEUKAEMIA
     Dosage: UNK
     Route: 065
     Dates: start: 20151201
  2. BLINCYTO [Suspect]
     Active Substance: BLINATUMOMAB
     Indication: B PRECURSOR TYPE ACUTE LEUKAEMIA
     Dosage: 9 MUG, QD
     Route: 065
     Dates: start: 20151210

REACTIONS (7)
  - Blast cell count increased [Unknown]
  - Neuropathy peripheral [Unknown]
  - Headache [Unknown]
  - Blood calcium increased [Unknown]
  - Adenoidal hypertrophy [Unknown]
  - Mental impairment [Unknown]
  - Epistaxis [Unknown]

NARRATIVE: CASE EVENT DATE: 201512
